FAERS Safety Report 22528704 (Version 1)
Quarter: 2023Q2

REPORT INFORMATION
  Report Type: Spontaneous
  Country: KR (occurrence: KR)
  Receive Date: 20230607
  Receipt Date: 20230607
  Transmission Date: 20230722
  Serious: Yes (Hospitalization)
  Sender: FDA-Public Use
  Company Number: KR-ORGANON-O2305KOR003137

PATIENT
  Age: 77 Year
  Sex: Female

DRUGS (11)
  1. COZAAR [Suspect]
     Active Substance: LOSARTAN POTASSIUM
     Dosage: 50 MILLIGRAM, QD; FORMULATION: FILM-COATED TABLETS
     Route: 048
     Dates: start: 20171226
  2. CYCLOPHOSPHAMIDE [Suspect]
     Active Substance: CYCLOPHOSPHAMIDE
     Indication: Lymphocytic leukaemia
     Dosage: 500 MILLIGRAM; ROUTE REPORTED AS VEIN
     Route: 042
     Dates: start: 20180127
  3. DOXORUBICIN HYDROCHLORIDE [Suspect]
     Active Substance: DOXORUBICIN HYDROCHLORIDE
     Indication: Lymphocytic leukaemia
     Dosage: 30 MILLIGRAM; ROUTE NOT REPORTED
     Dates: start: 20180127
  4. SIMVASTATIN [Concomitant]
     Active Substance: SIMVASTATIN
     Dosage: 20 MILLIGRAM, QD; FILM-COATED TABLETS
     Route: 048
     Dates: start: 20171226
  5. ACETAMINOPHEN [Concomitant]
     Active Substance: ACETAMINOPHEN
     Dosage: 1300 MILLIGRAM
     Route: 048
     Dates: start: 20180127, end: 20180224
  6. PHENIRAMINE MALEATE [Concomitant]
     Active Substance: PHENIRAMINE MALEATE
     Dosage: 4 MILLIGRAM; ROUTE REPORTED AS VEIN
     Route: 042
     Dates: start: 20180127, end: 20180224
  7. HYDROCORTISONE SODIUM SUCCINATE [Concomitant]
     Active Substance: HYDROCORTISONE SODIUM SUCCINATE
     Dosage: 200 MILLIGRAM; FREEZE-DRIED(LYOPHILIZED) POWDER INJECTION FOR SUSPENSION; ROUTE REPORTED AS VEIN
     Route: 042
     Dates: start: 20180127, end: 20180224
  8. TIROPRAMIDE HYDROCHLORIDE [Concomitant]
     Dosage: 100 MILLIGRAM, 0.33 DAY; FILM-COATED TABLETS
     Route: 048
     Dates: start: 20180113
  9. MAGNESIUM OXIDE [Concomitant]
     Active Substance: MAGNESIUM OXIDE
     Dosage: 250 MILLIGRAM, TID; ROUTE REPORTED AS EYE
     Route: 047
     Dates: start: 20180113
  10. CLOPIDOGREL BISULFATE [Concomitant]
     Active Substance: CLOPIDOGREL BISULFATE
     Dosage: 75 MILLIGRAM, QD; FILM-COATED TABLETS
     Route: 048
     Dates: start: 20180226
  11. SULFAMETHOXAZOLE AND TRIMETHOPRIM [Concomitant]
     Active Substance: SULFAMETHOXAZOLE\TRIMETHOPRIM
     Dosage: 1 FORMULATION, QD; UNSCORED TABLET
     Route: 048
     Dates: start: 20180108

REACTIONS (6)
  - Seizure [Recovered/Resolved]
  - Asthenia [Not Recovered/Not Resolved]
  - Back pain [Not Recovered/Not Resolved]
  - Contusion [Not Recovered/Not Resolved]
  - Insomnia [Not Recovered/Not Resolved]
  - Nausea [Recovered/Resolved]

NARRATIVE: CASE EVENT DATE: 20180224
